FAERS Safety Report 18653464 (Version 1)
Quarter: 2020Q4

REPORT INFORMATION
  Report Type: Report from Study
  Country: CN (occurrence: CN)
  Receive Date: 20201223
  Receipt Date: 20201223
  Transmission Date: 20210114
  Serious: Yes (Other)
  Sender: FDA-Public Use
  Company Number: CN-SUN PHARMACEUTICAL INDUSTRIES LTD-2020R1-272157

PATIENT
  Age: 89 Year
  Sex: Male

DRUGS (5)
  1. VINCRISTINE [Suspect]
     Active Substance: VINCRISTINE
     Indication: NON-HODGKIN^S LYMPHOMA STAGE IV
     Dosage: 1.4 MG (RECEIVING 4 COURSES)
     Route: 065
     Dates: start: 20181117, end: 20190418
  2. PIRARUBICIN [Suspect]
     Active Substance: PIRARUBICIN
     Indication: NON-HODGKIN^S LYMPHOMA STAGE IV
     Dosage: 30 MG (RECEIVING 4 COURSES)
     Route: 065
     Dates: start: 20181117, end: 20190418
  3. DEXAMETHASONE. [Suspect]
     Active Substance: DEXAMETHASONE
     Indication: NON-HODGKIN^S LYMPHOMA STAGE IV
     Dosage: 10 MG (RECEIVING 4 COURSES)
     Route: 065
     Dates: start: 20181117, end: 20190418
  4. CYCLOPHOSPHAMIDE. [Suspect]
     Active Substance: CYCLOPHOSPHAMIDE
     Indication: NON-HODGKIN^S LYMPHOMA STAGE IV
     Dosage: 600 MG (RECEIVING 4 COURSES)
     Route: 065
     Dates: start: 20181117, end: 20190418
  5. RITUXIMAB. [Suspect]
     Active Substance: RITUXIMAB
     Indication: NON-HODGKIN^S LYMPHOMA STAGE IV
     Dosage: 500 MG (RECEIVING 4 COURSES)
     Route: 065
     Dates: start: 20181117, end: 20190418

REACTIONS (6)
  - Pulmonary mycosis [Unknown]
  - Myelosuppression [Unknown]
  - Drug ineffective [Unknown]
  - Drug intolerance [Unknown]
  - Pneumonia [Unknown]
  - Diabetes mellitus [Unknown]
